FAERS Safety Report 9421396 (Version 1)
Quarter: 2013Q3

REPORT INFORMATION
  Report Type: Spontaneous
  Country: AU (occurrence: AU)
  Receive Date: 20130725
  Receipt Date: 20130725
  Transmission Date: 20140515
  Serious: Yes (Hospitalization)
  Sender: FDA-Public Use
  Company Number: AU-MERCK-1307AUS008888

PATIENT
  Age: 4 Year
  Sex: Male
  Weight: 17 kg

DRUGS (1)
  1. LORATADINE [Suspect]
     Dosage: 10 DOSE

REACTIONS (1)
  - Accidental exposure to product by child [Unknown]
